FAERS Safety Report 15111577 (Version 1)
Quarter: 2018Q3

REPORT INFORMATION
  Report Type: Spontaneous
  Country: IT (occurrence: IT)
  Receive Date: 20180705
  Receipt Date: 20180705
  Transmission Date: 20181010
  Serious: Yes (Life-Threatening)
  Sender: FDA-Public Use
  Company Number: IT-TEVA-2018-IT-921052

PATIENT
  Age: 62 Year
  Sex: Male
  Weight: 65 kg

DRUGS (5)
  1. DIAZEPAM. [Suspect]
     Active Substance: DIAZEPAM
     Route: 048
     Dates: start: 20180423, end: 20180510
  2. ROCEFIN 1 G/10 ML POLVERE E SOLVENTE PER SOLUZIONE INIETTABILE PER USO [Suspect]
     Active Substance: CEFTRIAXONE SODIUM
     Route: 051
     Dates: start: 20180404
  3. AZITHROMYCIN ANHYDROUS. [Suspect]
     Active Substance: AZITHROMYCIN ANHYDROUS
     Indication: PNEUMONITIS
     Route: 048
     Dates: start: 20180404
  4. ZOLPIDEM [Suspect]
     Active Substance: ZOLPIDEM\ZOLPIDEM TARTRATE
     Dosage: 10 MILLIGRAM DAILY;
     Route: 048
     Dates: start: 20180423, end: 20180510
  5. QUETIAPINE. [Suspect]
     Active Substance: QUETIAPINE
     Dosage: 200 MILLIGRAM DAILY;
     Route: 048
     Dates: start: 20180423, end: 20180510

REACTIONS (2)
  - Erythema [Not Recovered/Not Resolved]
  - Toxic epidermal necrolysis [Not Recovered/Not Resolved]

NARRATIVE: CASE EVENT DATE: 20180506
